FAERS Safety Report 9410994 (Version 1)
Quarter: 2013Q3

REPORT INFORMATION
  Report Type: Spontaneous
  Country: None (occurrence: US)
  Receive Date: 20130719
  Receipt Date: 20130719
  Transmission Date: 20140515
  Serious: No
  Sender: FDA-Public Use
  Company Number: US-TEVA-420085USA

PATIENT
  Sex: Male

DRUGS (4)
  1. AZILECT [Suspect]
     Indication: PARKINSON^S DISEASE
     Route: 048
  2. SINEMET [Concomitant]
     Route: 048
  3. AMANTADIN [Concomitant]
     Route: 048
  4. RANITIDINE [Concomitant]
     Route: 048

REACTIONS (6)
  - Feeling abnormal [Unknown]
  - Bradyphrenia [Unknown]
  - Arthralgia [Unknown]
  - Weight decreased [Unknown]
  - Orthostatic hypotension [Unknown]
  - Drug ineffective [Unknown]
